FAERS Safety Report 7400775-3 (Version None)
Quarter: 2011Q2

REPORT INFORMATION
  Report Type: 
  Country: None (occurrence: None)
  Receive Date: 20110407
  Receipt Date: 20110330
  Transmission Date: 20111010
  Serious: Yes (Other)
  Sender: FDA-Public Use
  Company Number: B0701066A

PATIENT
  Age: 72 Year
  Sex: Male

DRUGS (3)
  1. GINKGO EXTRACTS [Concomitant]
  2. SERETIDE [Suspect]
     Indication: ASTHMA
     Route: 065
     Dates: start: 20100101, end: 20110201
  3. UNKNOWN [Concomitant]

REACTIONS (5)
  - DEPRESSION [None]
  - DYSPHONIA [None]
  - ORAL FUNGAL INFECTION [None]
  - HYPOXIA [None]
  - SLEEP DISORDER [None]
